FAERS Safety Report 14339386 (Version 1)
Quarter: 2017Q4

REPORT INFORMATION
  Report Type: Spontaneous
  Country: GB (occurrence: GB)
  Receive Date: 20171230
  Receipt Date: 20171230
  Transmission Date: 20180321
  Serious: Yes (Disabling, Other)
  Sender: FDA-Public Use
  Company Number: GB-AUROBINDO-AUR-APL-2017-47994

PATIENT
  Age: 35 Year
  Sex: Female

DRUGS (2)
  1. SERTRALINE AUROBINDO [Suspect]
     Active Substance: SERTRALINE HYDROCHLORIDE
     Indication: PRODUCT USED FOR UNKNOWN INDICATION
     Dosage: ()
     Route: 048
     Dates: start: 1996
  2. ELLESTE-SOLO [Concomitant]
     Indication: PRODUCT USED FOR UNKNOWN INDICATION

REACTIONS (9)
  - Fibromyalgia [Unknown]
  - Chronic fatigue syndrome [Not Recovered/Not Resolved]
  - Drug withdrawal syndrome [Unknown]
  - Cognitive disorder [Unknown]
  - Malaise [Unknown]
  - Fatigue [Unknown]
  - Mood swings [Unknown]
  - Balance disorder [Unknown]
  - Sleep disorder [Unknown]

NARRATIVE: CASE EVENT DATE: 2001
